FAERS Safety Report 24728230 (Version 1)
Quarter: 2024Q4

REPORT INFORMATION
  Report Type: Spontaneous
  Country: DE (occurrence: DE)
  Receive Date: 20241212
  Receipt Date: 20241212
  Transmission Date: 20250115
  Serious: Yes (Other)
  Sender: TEVA
  Company Number: DE-DCGMA-24204335

PATIENT
  Age: 31 Year
  Sex: Female

DRUGS (1)
  1. COPAXONE [Suspect]
     Active Substance: GLATIRAMER ACETATE
     Indication: Multiple sclerosis
     Route: 058
     Dates: start: 201908

REACTIONS (2)
  - Erythema multiforme [Recovered/Resolved]
  - Injection site dermatitis [Recovered/Resolved]

NARRATIVE: CASE EVENT DATE: 20240914
